FAERS Safety Report 18331542 (Version 1)
Quarter: 2020Q3

REPORT INFORMATION
  Report Type: Spontaneous
  Country: ZA (occurrence: ZA)
  Receive Date: 20200930
  Receipt Date: 20200930
  Transmission Date: 20201103
  Serious: Yes (Death, Hospitalization)
  Sender: FDA-Public Use
  Company Number: ZA-AZURITY PHARMACEUTICALS, INC.-2020AZY00068

PATIENT
  Age: 18 Year
  Sex: Female

DRUGS (1)
  1. AMLODIPINE [Suspect]
     Active Substance: AMLODIPINE BESYLATE
     Dosage: 250 MG
     Route: 048

REACTIONS (6)
  - Hyponatraemia [Recovered/Resolved]
  - Depressed level of consciousness [Recovered/Resolved]
  - Intentional overdose [Recovered/Resolved]
  - Hypotension [Recovered/Resolved]
  - Sepsis [Fatal]
  - Pulmonary oedema [Unknown]
